FAERS Safety Report 5324535-2 (Version None)
Quarter: 2007Q2

REPORT INFORMATION
  Report Type: 
  Country: None (occurrence: None)
  Receive Date: 20070514
  Receipt Date: 20070504
  Transmission Date: 20071010
  Serious: Yes (Life-Threatening)
  Sender: FDA-Public Use
  Company Number: FR-PFIZER INC-2007035698

PATIENT
  Age: 80 Year
  Sex: Male

DRUGS (6)
  1. XANAX [Suspect]
     Route: 048
     Dates: start: 20061201, end: 20061201
  2. HYPNOVEL [Suspect]
     Route: 042
     Dates: start: 20061201, end: 20061201
  3. ATROPINE SULFATE [Suspect]
     Route: 042
     Dates: start: 20061201, end: 20061201
  4. THIOPENTAL SODIUM [Suspect]
     Route: 042
     Dates: start: 20061201, end: 20061201
  5. SUFENTA [Suspect]
     Route: 042
     Dates: start: 20061201, end: 20061201
  6. LOVENOX [Concomitant]
     Route: 030
     Dates: start: 20061201, end: 20061214

REACTIONS (1)
  - GUILLAIN-BARRE SYNDROME [None]
